FAERS Safety Report 15947347 (Version 1)
Quarter: 2019Q1

REPORT INFORMATION
  Report Type: Spontaneous
  Country: FR (occurrence: FR)
  Receive Date: 20190211
  Receipt Date: 20190211
  Transmission Date: 20190417
  Serious: Yes (Hospitalization)
  Sender: FDA-Public Use
  Company Number: FR-NAPPMUNDI-GBR-2019-0063896

PATIENT
  Age: 35 Year
  Sex: Male

DRUGS (7)
  1. CANNABIS [Suspect]
     Active Substance: CANNABIS SATIVA SUBSP. INDICA TOP
     Indication: DRUG ABUSE
     Dosage: UNK, Q1H, 4 JOINTS/JOUR
     Route: 055
  2. COCAINE [Suspect]
     Active Substance: COCAINE
     Indication: DRUG ABUSE
     Dosage: 3 G, WEEKLY
     Route: 045
     Dates: start: 2002, end: 2018
  3. LSD [Suspect]
     Active Substance: LYSERGIDE
     Indication: DRUG ABUSE
     Dosage: NON RENSEIGNEE
     Route: 065
  4. ALCOOL MODIFIE [Suspect]
     Active Substance: ALCOHOL
     Indication: ALCOHOL USE
     Dosage: UNK UNK, DAILY, 22 UI/JOUR
     Route: 048
  5. OXYCODONE HYDROCHLORIDE. [Suspect]
     Active Substance: OXYCODONE HYDROCHLORIDE
     Indication: PRODUCT USED FOR UNKNOWN INDICATION
     Dosage: NON RENSEIGNEE
     Route: 045
     Dates: start: 2017, end: 2018
  6. HEROIN [Suspect]
     Active Substance: DIAMORPHINE
     Indication: DRUG DEPENDENCE
     Dosage: NON RENSEIGNEE
     Route: 045
     Dates: start: 2002
  7. NICOTIANA TABACUM [Suspect]
     Active Substance: TOBACCO LEAF
     Indication: TOBACCO USER
     Dosage: UNK, DAILY, 12 CIG/JOUR
     Route: 055

REACTIONS (5)
  - Intentional product misuse [Not Recovered/Not Resolved]
  - Drug abuse [Not Recovered/Not Resolved]
  - Alcohol abuse [Recovering/Resolving]
  - Substance abuse [Not Recovered/Not Resolved]
  - Drug abuse [Recovering/Resolving]

NARRATIVE: CASE EVENT DATE: 1998
